FAERS Safety Report 4362466-5 (Version None)
Quarter: 2004Q2

REPORT INFORMATION
  Report Type: 
  Country: None (occurrence: None)
  Receive Date: 20040521
  Receipt Date: 20040511
  Transmission Date: 20050107
  Serious: Yes (Disabling)
  Sender: FDA-Public Use
  Company Number: FR-GLAXOSMITHKLINE-B0332627A

PATIENT
  Age: 58 Year
  Sex: Female
  Weight: 119 kg

DRUGS (4)
  1. AVANDIA [Suspect]
     Dosage: 4MG PER DAY
     Route: 048
     Dates: start: 20020501
  2. AMAREL [Concomitant]
     Dosage: 4MG PER DAY
     Route: 048
  3. AVLOCARDYL [Concomitant]
     Route: 065
  4. INEXIUM [Concomitant]
     Route: 048

REACTIONS (3)
  - DIZZINESS [None]
  - FALL [None]
  - WEIGHT INCREASED [None]
